FAERS Safety Report 16625448 (Version 1)
Quarter: 2019Q3

REPORT INFORMATION
  Report Type: Spontaneous
  Country: US (occurrence: US)
  Receive Date: 20190724
  Receipt Date: 20190724
  Transmission Date: 20191004
  Serious: No
  Sender: FDA-Public Use
  Company Number: US-PFIZER INC-2019314663

PATIENT
  Age: 44 Year
  Sex: Male

DRUGS (1)
  1. SUTENT [Suspect]
     Active Substance: SUNITINIB MALATE
     Indication: RENAL CANCER
     Dosage: 25 MG (2 TABLETS OF 12.5 MG), CYCLIC (DAILY, 1 WEEK THEN OFF 1 WEEK.)

REACTIONS (2)
  - Diarrhoea [Unknown]
  - Insomnia [Unknown]
